FAERS Safety Report 5219736-8 (Version None)
Quarter: 2007Q1

REPORT INFORMATION
  Report Type: 
  Country: None (occurrence: None)
  Receive Date: 20061201
  Receipt Date: 20060730
  Transmission Date: 20070707
  Serious: No
  Sender: FDA-Public Use
  Company Number: 2006PV018451

PATIENT
  Age: 39 Year
  Sex: Male
  Weight: 159.2126 kg

DRUGS (8)
  1. BYETTA [Suspect]
     Indication: DIABETES MELLITUS NON-INSULIN-DEPENDENT
     Dosage: 5 QD;BID;SC
     Route: 058
     Dates: start: 20060728
  2. WELLBUTRIN [Concomitant]
  3. ENALAPRIL MALEATE [Concomitant]
  4. SINGULAIR [Concomitant]
  5. GEMFRIZOLE [Concomitant]
  6. LYRICA [Concomitant]
  7. ADVAIR DISKUS 100/50 [Concomitant]
  8. COMBIVENT [Concomitant]

REACTIONS (4)
  - BLOOD GLUCOSE DECREASED [None]
  - COLD SWEAT [None]
  - FEELING JITTERY [None]
  - NAUSEA [None]
